FAERS Safety Report 6153923-X (Version None)
Quarter: 2009Q2

REPORT INFORMATION
  Report Type: 
  Country: None (occurrence: None)
  Receive Date: 20090414
  Receipt Date: 20090401
  Transmission Date: 20091009
  Serious: Yes (Other)
  Sender: FDA-Public Use
  Company Number: DE-RANBAXY-2009RR-23202

PATIENT
  Age: 42 Year
  Sex: Male

DRUGS (5)
  1. CEFTRIAXONE [Suspect]
     Indication: WHIPPLE'S DISEASE
  2. CO-TRIMOXAZOLE [Suspect]
     Indication: WHIPPLE'S DISEASE
  3. DOXYCYCLINE HCL [Suspect]
     Indication: WHIPPLE'S DISEASE
  4. STREPTOMYCIN [Suspect]
     Indication: WHIPPLE'S DISEASE
  5. HYDROXYCHOLOROQUINE SULPHATE-BP [Suspect]

REACTIONS (1)
  - IMMUNE RECONSTITUTION SYNDROME [None]
